FAERS Safety Report 17504456 (Version 2)
Quarter: 2020Q2

REPORT INFORMATION
  Report Type: Spontaneous
  Country: US (occurrence: US)
  Receive Date: 20200305
  Receipt Date: 20200407
  Transmission Date: 20200713
  Serious: Yes (Hospitalization)
  Sender: FDA-Public Use
  Company Number: US-ASTRAZENECA-2020SE31121

PATIENT
  Age: 737 Day
  Sex: Female
  Weight: 8.6 kg

DRUGS (2)
  1. EPINEPHRINE HCL [Concomitant]
     Active Substance: EPINEPHRINE
  2. SYNAGIS [Suspect]
     Active Substance: PALIVIZUMAB
     Dosage: 50MG/0.5ML, 15 MG/KG MONTHLY
     Route: 030
     Dates: start: 20200131, end: 20200131

REACTIONS (2)
  - Respiratory distress [Unknown]
  - Dyspnoea [Recovered/Resolved]

NARRATIVE: CASE EVENT DATE: 20200221
